FAERS Safety Report 7390932-7 (Version None)
Quarter: 2011Q2

REPORT INFORMATION
  Report Type: 
  Country: None (occurrence: None)
  Receive Date: 20110404
  Receipt Date: 20110321
  Transmission Date: 20111010
  Serious: Yes (Hospitalization)
  Sender: FDA-Public Use
  Company Number: FR-CELGENEUS-056-21880-10091406

PATIENT
  Sex: Male

DRUGS (6)
  1. AMARYL [Concomitant]
     Indication: TYPE 2 DIABETES MELLITUS
     Dosage: 2 MILLIGRAM
     Route: 065
  2. REVLIMID [Suspect]
     Indication: MULTIPLE MYELOMA
     Route: 048
     Dates: start: 20070305, end: 20100710
  3. JANUVIA [Concomitant]
     Dosage: 100 MILLIGRAM
     Route: 065
  4. SIMVASTATIN [Concomitant]
     Dosage: 20 MILLIGRAM
     Route: 065
  5. CIFLOX [Concomitant]
     Route: 065
  6. AUGMENTIN [Concomitant]
     Route: 065

REACTIONS (1)
  - HODGKIN'S DISEASE [None]
